FAERS Safety Report 9987592 (Version 1)
Quarter: 2014Q1

REPORT INFORMATION
  Report Type: Spontaneous
  Country: US (occurrence: US)
  Receive Date: 20140307
  Receipt Date: 20140307
  Transmission Date: 20141002
  Serious: No
  Sender: FDA-Public Use
  Company Number: US-AMGEN-USASP2014012786

PATIENT
  Age: 27 Year
  Sex: Male

DRUGS (1)
  1. ENBREL [Suspect]
     Indication: PSORIASIS
     Dosage: 50 MG, QWK
     Route: 065
     Dates: start: 20131002, end: 201401

REACTIONS (3)
  - Upper respiratory tract congestion [Recovered/Resolved]
  - Tooth fracture [Not Recovered/Not Resolved]
  - Oropharyngeal pain [Recovered/Resolved]
